FAERS Safety Report 7759131-0 (Version None)
Quarter: 2011Q3

REPORT INFORMATION
  Report Type: 
  Country: None (occurrence: None)
  Receive Date: 20110919
  Receipt Date: 20110913
  Transmission Date: 20111222
  Serious: Yes (Death, Hospitalization)
  Sender: FDA-Public Use
  Company Number: PHHY2011MX81535

PATIENT
  Age: 73 Year
  Sex: Male

DRUGS (1)
  1. RASILEZ HCT [Suspect]
     Indication: HYPERTENSION
     Dosage: 1 DF, (DAILY)
     Route: 048
     Dates: start: 20110701, end: 20110801

REACTIONS (2)
  - LIVER INJURY [None]
  - DEATH [None]
